FAERS Safety Report 4610556-1 (Version None)
Quarter: 2005Q2

REPORT INFORMATION
  Report Type: 
  Country: None (occurrence: None)
  Receive Date: 20050228
  Receipt Date: 20041213
  Transmission Date: 20051028
  Serious: Yes (Hospitalization)
  Sender: FDA-Public Use
  Company Number: A03200404201

PATIENT
  Age: 72 Year
  Sex: Female

DRUGS (11)
  1. MILRINONE - SOLUTION - UNIT DOSE : UNKNOWN [Suspect]
     Dosage: ^EXCESS^ DOSE DUE TO AN INFUSION PUMP ERROR - INTRAVENOUS NOS
     Route: 042
     Dates: start: 20040819
  2. NESIRITDE [Suspect]
     Indication: CORONARY ARTERY SURGERY
     Dosage: ^0.01 UG/KG/MIN OR PLACEBO^
     Dates: start: 20040810, end: 20040813
  3. NYSTATIN [Concomitant]
  4. FUROSEMIDE [Concomitant]
  5. ACETYYLSALICYLIC ACID [Concomitant]
  6. ENALAPRIL [Concomitant]
  7. AMIODARONE HCL [Concomitant]
  8. POTASSIUM CHLORIDE [Concomitant]
  9. RANITIDINE [Concomitant]
  10. INSULIN [Concomitant]
  11. ATORVASTATIN CALCIUM [Concomitant]

REACTIONS (3)
  - ACCIDENTAL OVERDOSE [None]
  - HYPOTENSION [None]
  - MEDICATION ERROR [None]
